FAERS Safety Report 4823467-3 (Version None)
Quarter: 2005Q4

REPORT INFORMATION
  Report Type: 
  Country: None (occurrence: None)
  Receive Date: 20051107
  Receipt Date: 20051103
  Transmission Date: 20060501
  Serious: Yes (Hospitalization)
  Sender: FDA-Public Use
  Company Number: 2005S1007554

PATIENT
  Age: 45 Year
  Sex: Female

DRUGS (4)
  1. FENTANYL TRANSDERMAL SYSTEM (50 MCG/BR) [Suspect]
     Indication: HEADACHE
     Dosage: 50 MCG/HR;QOD;TDER
     Dates: start: 20050517
  2. FENTANYL TRANSDERMAL SYSTEM (50 MCG/BR) [Suspect]
     Indication: NECK PAIN
     Dosage: 50 MCG/HR;QOD;TDER
     Dates: start: 20050517
  3. FENTANYL TRANSDERMAL SYSTEM [Suspect]
     Indication: HEADACHE
     Dosage: 100 MCG/HR;QOD; TDER
     Dates: start: 20050517
  4. FENTANYL TRANSDERMAL SYSTEM [Suspect]
     Indication: NECK PAIN
     Dosage: 100 MCG/HR;QOD; TDER
     Dates: start: 20050517

REACTIONS (6)
  - DRUG INEFFECTIVE [None]
  - DRUG WITHDRAWAL SYNDROME [None]
  - MENTAL IMPAIRMENT [None]
  - MUSCLE SPASMS [None]
  - PHARMACEUTICAL PRODUCT COMPLAINT [None]
  - VOMITING [None]
